FAERS Safety Report 5399251-1 (Version None)
Quarter: 2007Q3

REPORT INFORMATION
  Report Type: 
  Country: None (occurrence: None)
  Receive Date: 20070727
  Receipt Date: 20070726
  Transmission Date: 20080115
  Serious: Yes (Hospitalization)
  Sender: FDA-Public Use
  Company Number: A0666562A

PATIENT
  Age: 45 Year
  Sex: Male

DRUGS (2)
  1. COREG CR [Suspect]
     Indication: HYPERTENSION
     Dosage: 40MG PER DAY
     Route: 048
     Dates: start: 20070621, end: 20070101
  2. NO CONCURRENT MEDICATION [Concomitant]

REACTIONS (5)
  - ABDOMINAL DISTENSION [None]
  - BLOOD PRESSURE FLUCTUATION [None]
  - DYSURIA [None]
  - FATIGUE [None]
  - RENAL FAILURE ACUTE [None]
